FAERS Safety Report 7717906-8 (Version None)
Quarter: 2011Q3

REPORT INFORMATION
  Report Type: 
  Country: None (occurrence: None)
  Receive Date: 20110830
  Receipt Date: 20110819
  Transmission Date: 20111222
  Serious: Yes (Other)
  Sender: FDA-Public Use
  Company Number: CA-JNJFOC-20110301463

PATIENT
  Sex: Male
  Weight: 85 kg

DRUGS (9)
  1. REMICADE [Suspect]
     Indication: CROHN'S DISEASE
     Route: 042
     Dates: start: 20080115
  2. FERROUS SULFATE TAB [Concomitant]
     Route: 065
  3. TOPAMAX [Concomitant]
     Route: 065
  4. REMICADE [Suspect]
     Route: 042
     Dates: start: 20110819
  5. SOLU-CORTEF [Concomitant]
     Indication: PREMEDICATION
     Route: 042
  6. BENADRYL [Concomitant]
     Indication: PREMEDICATION
     Route: 042
  7. ALL OTHER THERAPEUTIC PRODUCTS [Concomitant]
     Route: 065
  8. VALTREX [Concomitant]
     Route: 065
  9. MAXERAN [Concomitant]
     Indication: PREMEDICATION
     Route: 042

REACTIONS (3)
  - MIGRAINE [None]
  - RASH [None]
  - NEPHROLITHIASIS [None]
